FAERS Safety Report 6556740-1 (Version None)
Quarter: 2010Q1

REPORT INFORMATION
  Report Type: 
  Country: None (occurrence: None)
  Receive Date: 20100128
  Receipt Date: 20100118
  Transmission Date: 20100710
  Serious: Yes (Other)
  Sender: FDA-Public Use
  Company Number: JP-PFIZER INC-2010006812

PATIENT
  Age: 76 Year
  Sex: Male

DRUGS (1)
  1. CORTRIL [Suspect]
     Indication: ISOLATED ADRENOCORTICOTROPIC HORMONE DEFICIENCY
     Dosage: 10 MG, 2X/DAY
     Route: 048
     Dates: start: 20091217

REACTIONS (1)
  - PANCYTOPENIA [None]
